FAERS Safety Report 9589838 (Version 1)
Quarter: 2013Q4

REPORT INFORMATION
  Report Type: Spontaneous
  Country: US (occurrence: US)
  Receive Date: 20131003
  Receipt Date: 20131003
  Transmission Date: 20140711
  Serious: No
  Sender: FDA-Public Use
  Company Number: US-AMGEN-USASP2012072618

PATIENT
  Age: 62 Year
  Sex: Female
  Weight: 83.9 kg

DRUGS (7)
  1. ENBREL [Suspect]
     Indication: PSORIATIC ARTHROPATHY
     Dosage: 50 MG, QWK
     Route: 058
  2. HYZAAR [Concomitant]
     Dosage: 100-12.5
  3. LOVASTATIN [Concomitant]
     Dosage: 10 MG, UNK
  4. ADVIL                              /00044201/ [Concomitant]
     Dosage: 200 MG, UNK
  5. CENTRUM                            /02217401/ [Concomitant]
     Dosage: UNK
  6. ZINC [Concomitant]
     Dosage: 30 MG, UNK
  7. BENADRYL                           /00000402/ [Concomitant]
     Dosage: 25 MG, UNK

REACTIONS (4)
  - Nasal congestion [Unknown]
  - Headache [Unknown]
  - Throat irritation [Unknown]
  - Increased upper airway secretion [Unknown]
